FAERS Safety Report 6375741-X (Version None)
Quarter: 2009Q3

REPORT INFORMATION
  Report Type: 
  Country: None (occurrence: None)
  Receive Date: 20090922
  Receipt Date: 20090922
  Transmission Date: 20100115
  Serious: Yes (Hospitalization)
  Sender: FDA-Public Use
  Company Number: None

PATIENT
  Age: 41 Year
  Sex: Female

DRUGS (1)
  1. IRON DEXTRAN [Suspect]
     Indication: IRON DEFICIENCY ANAEMIA
     Dosage: 25MG/50ML NORMAL SALINE ONCE IV DRIP
     Route: 041
     Dates: start: 20090915, end: 20090915

REACTIONS (4)
  - DYSPNOEA [None]
  - FACE OEDEMA [None]
  - PRURITUS [None]
  - RESPIRATORY DISTRESS [None]
